FAERS Safety Report 18116931 (Version 2)
Quarter: 2020Q3

REPORT INFORMATION
  Report Type: Report from Study
  Country: None (occurrence: US)
  Receive Date: 20200805
  Receipt Date: 20200902
  Transmission Date: 20201103
  Serious: Yes (Other)
  Sender: FDA-Public Use
  Company Number: US-ABBVIE-20K-163-3468746-00

PATIENT
  Age: 40 Year
  Sex: Female

DRUGS (2)
  1. ORILISSA [Suspect]
     Active Substance: ELAGOLIX SODIUM
     Indication: PRODUCT USED FOR UNKNOWN INDICATION
     Route: 048
     Dates: start: 20191113, end: 202005
  2. ORILISSA [Suspect]
     Active Substance: ELAGOLIX SODIUM
     Route: 048
     Dates: start: 202005

REACTIONS (8)
  - Urinary retention [Not Recovered/Not Resolved]
  - Menstrual disorder [Not Recovered/Not Resolved]
  - Fatigue [Unknown]
  - Urethral caruncle [Recovered/Resolved]
  - Urethral pain [Recovered/Resolved]
  - Urethral haemorrhage [Recovered/Resolved]
  - Bladder disorder [Not Recovered/Not Resolved]
  - Seizure [Unknown]

NARRATIVE: CASE EVENT DATE: 202005
